FAERS Safety Report 20325836 (Version 1)
Quarter: 2022Q1

REPORT INFORMATION
  Report Type: Spontaneous
  Country: US (occurrence: US)
  Receive Date: 20220112
  Receipt Date: 20220112
  Transmission Date: 20220424
  Serious: No
  Sender: FDA-Public Use
  Company Number: US-TEVA-2021-US-1993693

PATIENT
  Age: 65 Year
  Sex: Female

DRUGS (2)
  1. LORAZEPAM [Suspect]
     Active Substance: LORAZEPAM
     Indication: Anxiety
     Route: 065
     Dates: start: 20211222
  2. LORAZEPAM [Suspect]
     Active Substance: LORAZEPAM
     Indication: Panic disorder

REACTIONS (1)
  - Therapeutic product effect incomplete [Unknown]

NARRATIVE: CASE EVENT DATE: 20211222
